FAERS Safety Report 7526164-9 (Version None)
Quarter: 2011Q2

REPORT INFORMATION
  Report Type: 
  Country: None (occurrence: None)
  Receive Date: 20110606
  Receipt Date: 20110520
  Transmission Date: 20111010
  Serious: No
  Sender: FDA-Public Use
  Company Number: US-B.I. PHARMACEUTICALS,INC./RIDGEFIELD-2011-BP-13585BP

PATIENT
  Sex: Male

DRUGS (10)
  1. HYDRODUIORIL [Concomitant]
     Indication: HYPERTENSION
  2. GLUCOPHAGE [Concomitant]
     Indication: DIABETES MELLITUS
  3. TENEX [Concomitant]
     Indication: HYPERTENSION
     Dates: start: 20110301
  4. AMYRIL [Concomitant]
     Indication: DIABETES MELLITUS
  5. PRADAXA [Suspect]
     Indication: ATRIAL FIBRILLATION
     Dosage: 300 MG
     Route: 048
     Dates: start: 20110511
  6. CRESTOR [Concomitant]
     Indication: BLOOD CHOLESTEROL INCREASED
  7. ALTASE [Concomitant]
     Indication: HYPERTENSION
  8. TOPROL-XL [Concomitant]
     Indication: HYPERTENSION
  9. VALTURNA [Concomitant]
     Indication: HYPERTENSION
  10. ASPIRIN [Concomitant]

REACTIONS (1)
  - OEDEMA PERIPHERAL [None]
